FAERS Safety Report 13367870 (Version 1)
Quarter: 2017Q1

REPORT INFORMATION
  Report Type: Spontaneous
  Country: FR (occurrence: FR)
  Receive Date: 20170324
  Receipt Date: 20170324
  Transmission Date: 20170429
  Serious: Yes (Hospitalization, Other)
  Sender: FDA-Public Use
  Company Number: FR-TELIGENT, INC-IGIL20170105

PATIENT
  Age: 58 Year
  Sex: Female

DRUGS (12)
  1. CEFTAZIDIME. [Suspect]
     Active Substance: CEFTAZIDIME
     Indication: FEBRILE BONE MARROW APLASIA
     Dosage: 2 G THREE TIMES DAILY
     Route: 042
     Dates: start: 20160715, end: 20160804
  2. PIPERACILLIN PLUS TAZOBACTAM [Suspect]
     Active Substance: PIPERACILLIN SODIUM\TAZOBACTAM SODIUM
     Indication: FEBRILE BONE MARROW APLASIA
     Dosage: 4 G FOUR TIMES DAILY
     Route: 042
     Dates: start: 20160707, end: 20160715
  3. MYCOSTATIN [Suspect]
     Active Substance: NYSTATIN
     Indication: PRODUCT USED FOR UNKNOWN INDICATION
     Dosage: 1000000 IU THREE TIMES DAILY
     Route: 048
     Dates: start: 20160704, end: 20160809
  4. ZELITREX [Suspect]
     Active Substance: VALACYCLOVIR HYDROCHLORIDE
     Indication: HERPES VIRUS INFECTION
     Dosage: 500 MG THREE TIMES DAILY
     Route: 048
     Dates: start: 20160703, end: 20160809
  5. INEXIUM [Suspect]
     Active Substance: ESOMEPRAZOLE
     Indication: GASTROOESOPHAGEAL REFLUX DISEASE
     Dosage: 20 MG DAILY
     Route: 048
     Dates: start: 20160704, end: 20160805
  6. CASPOFUNGIN [Concomitant]
     Active Substance: CASPOFUNGIN
     Indication: SYSTEMIC CANDIDA
     Route: 065
     Dates: start: 20160721, end: 20160804
  7. THIOCOLCHICOSIDE [Concomitant]
     Active Substance: THIOCOLCHICOSIDE
     Indication: PRODUCT USED FOR UNKNOWN INDICATION
     Route: 065
     Dates: start: 20160804, end: 20160809
  8. ALPRAZOLAM. [Suspect]
     Active Substance: ALPRAZOLAM
     Indication: ANXIETY
     Dosage: 0.25 MG AS NEEDED
     Route: 048
     Dates: start: 20160703
  9. VANCOMYCINE [Suspect]
     Active Substance: VANCOMYCIN
     Indication: FEBRILE BONE MARROW APLASIA
     Dosage: 2 G DAILY
     Route: 042
     Dates: start: 20160724, end: 20160804
  10. TRIFLUCAN [Concomitant]
     Active Substance: FLUCONAZOLE
     Indication: PRODUCT USED FOR UNKNOWN INDICATION
     Route: 042
     Dates: start: 20160701, end: 20160721
  11. ZELITREX [Suspect]
     Active Substance: VALACYCLOVIR HYDROCHLORIDE
     Indication: RASH
  12. VITAMIN K [Suspect]
     Active Substance: PHYTONADIONE
     Indication: PRODUCT USED FOR UNKNOWN INDICATION
     Dosage: 10 MG
     Route: 048
     Dates: start: 20160701, end: 20160803

REACTIONS (9)
  - Drug hypersensitivity [Not Recovered/Not Resolved]
  - Erythema [Recovering/Resolving]
  - Pyrexia [Recovering/Resolving]
  - Rash macular [Recovering/Resolving]
  - Toxic skin eruption [Recovering/Resolving]
  - Nodular rash [Recovering/Resolving]
  - Oedema peripheral [Recovering/Resolving]
  - Rash maculo-papular [Recovering/Resolving]
  - Rash pruritic [Recovering/Resolving]

NARRATIVE: CASE EVENT DATE: 20160715
